FAERS Safety Report 14706772 (Version 6)
Quarter: 2019Q2

REPORT INFORMATION
  Report Type: Report from Study
  Country: None (occurrence: US)
  Receive Date: 20180402
  Receipt Date: 20190603
  Transmission Date: 20190711
  Serious: Yes (Hospitalization, Other)
  Sender: FDA-Public Use
  Company Number: US-ABBVIE-18K-163-2305889-00

PATIENT
  Age: 61 Year
  Sex: Male

DRUGS (1)
  1. HUMIRA [Suspect]
     Active Substance: ADALIMUMAB
     Indication: PSORIATIC ARTHROPATHY
     Route: 058
     Dates: end: 201904

REACTIONS (11)
  - Back pain [Unknown]
  - Dehydration [Not Recovered/Not Resolved]
  - Fluid retention [Unknown]
  - Cardiac failure congestive [Recovering/Resolving]
  - Pericardial effusion [Recovered/Resolved]
  - Dizziness [Unknown]
  - Fall [Unknown]
  - Fluid intake reduced [Unknown]
  - Myocardial oedema [Unknown]
  - Loss of consciousness [Not Recovered/Not Resolved]
  - Dyspnoea [Recovered/Resolved]

NARRATIVE: CASE EVENT DATE: 201702
